FAERS Safety Report 4740795-0 (Version None)
Quarter: 2005Q3

REPORT INFORMATION
  Report Type: 
  Country: None (occurrence: None)
  Receive Date: 20050810
  Receipt Date: 20050808
  Transmission Date: 20060218
  Serious: Yes (Other)
  Sender: FDA-Public Use
  Company Number: AU-GLAXOSMITHKLINE-B0390114A

PATIENT
  Sex: Male

DRUGS (1)
  1. PANADOL TABLETS [Suspect]
     Dosage: 29TAB PER DAY
     Route: 048
     Dates: start: 20050807

REACTIONS (3)
  - INTENTIONAL MISUSE [None]
  - NO ADVERSE DRUG EFFECT [None]
  - OVERDOSE [None]
